FAERS Safety Report 9238539 (Version 1)
Quarter: 2013Q2

REPORT INFORMATION
  Report Type: Spontaneous
  Country: US (occurrence: None)
  Receive Date: 20130417
  Receipt Date: 20130417
  Transmission Date: 20140414
  Serious: Yes (Other)
  Sender: FDA-Public Use
  Company Number: None

PATIENT
  Age: 61 Year
  Sex: Male

DRUGS (1)
  1. STIVARGA [Suspect]
     Indication: GASTRIC CANCER
     Dosage: 160MG DAILY FOR 21 DATS PO
     Route: 048
     Dates: start: 20130411, end: 20130414

REACTIONS (4)
  - Malaise [None]
  - Muscle spasms [None]
  - Asthenia [None]
  - Hallucination [None]
